FAERS Safety Report 9346008 (Version 1)
Quarter: 2013Q2

REPORT INFORMATION
  Report Type: Spontaneous
  Country: SE (occurrence: SE)
  Receive Date: 20130613
  Receipt Date: 20130613
  Transmission Date: 20140414
  Serious: Yes (Other)
  Sender: FDA-Public Use
  Company Number: PHHY2013SE058252

PATIENT
  Age: 73 Year
  Sex: Male

DRUGS (1)
  1. ONDANSETRON SANDOZ [Suspect]
     Indication: ANTIEMETIC SUPPORTIVE CARE
     Dosage: 2 MG/ML (4 ML)
     Route: 042
     Dates: start: 20130502, end: 20130502

REACTIONS (2)
  - Dermatitis bullous [Recovered/Resolved]
  - Application site reaction [Recovered/Resolved]
